FAERS Safety Report 16609265 (Version 3)
Quarter: 2019Q3

REPORT INFORMATION
  Report Type: Spontaneous
  Country: JP (occurrence: JP)
  Receive Date: 20190722
  Receipt Date: 20190912
  Transmission Date: 20191004
  Serious: Yes (Life-Threatening, Hospitalization)
  Sender: FDA-Public Use
  Company Number: JP-ELI_LILLY_AND_COMPANY-JP201907010361

PATIENT
  Sex: Female
  Weight: 43 kg

DRUGS (3)
  1. CELLCEPT [MYCOPHENOLATE MOFETIL HYDROCHLORIDE [Concomitant]
     Indication: POLYMYOSITIS
     Dosage: 1500 MG, UNKNOWN
     Route: 065
     Dates: start: 20190526, end: 20190628
  2. RINDERON #1 [Concomitant]
     Indication: RHEUMATOID ARTHRITIS
     Dosage: 0.25 MG, UNKNOWN
     Route: 065
     Dates: start: 20190622
  3. OLUMIANT [Suspect]
     Active Substance: BARICITINIB
     Indication: RHEUMATOID ARTHRITIS
     Dosage: 4 MG, DAILY
     Route: 048
     Dates: start: 20190416, end: 20190628

REACTIONS (2)
  - Adrenal insufficiency [Recovered/Resolved]
  - Septic shock [Recovered/Resolved]

NARRATIVE: CASE EVENT DATE: 20190627
